FAERS Safety Report 8785164 (Version 4)
Quarter: 2013Q3

REPORT INFORMATION
  Report Type: Report from Study
  Country: JP (occurrence: JP)
  Receive Date: 20120914
  Receipt Date: 20130724
  Transmission Date: 20140515
  Serious: Yes (Other)
  Sender: FDA-Public Use
  Company Number: JP-VERTEX PHARMACEUTICAL INC.-AE-2012-011835

PATIENT
  Age: 56 Year
  Sex: Male

DRUGS (11)
  1. VX-950 (TELAPREVIR) [Suspect]
     Indication: CHRONIC HEPATITIS C
     Dosage: 1500 MG, QD
     Route: 048
     Dates: start: 20120611, end: 20120903
  2. RIBAVIRIN [Suspect]
     Indication: CHRONIC HEPATITIS C
     Dosage: 800 MG, QD
     Route: 048
     Dates: start: 20120611, end: 20120702
  3. RIBAVIRIN [Suspect]
     Dosage: 400 MG, QD
     Route: 048
     Dates: start: 20120703, end: 20121126
  4. PEGINTRON [Suspect]
     Indication: CHRONIC HEPATITIS C
     Dosage: 1.76 ?G/KG, QW
     Route: 058
     Dates: start: 20120611, end: 20120625
  5. PEGINTRON [Suspect]
     Dosage: 1.5 ?G/KG,QW
     Route: 058
     Dates: start: 20120703, end: 20120717
  6. PEGINTRON [Suspect]
     Dosage: 50 ?G, QW
     Route: 058
     Dates: start: 20120724, end: 20121120
  7. CALONAL [Concomitant]
     Dosage: 1200 MG/DAY, PRN
     Route: 048
     Dates: start: 20120611
  8. CALONAL [Concomitant]
     Dosage: 1200 UNK, UNK
     Route: 048
     Dates: end: 20120709
  9. GASTER D [Concomitant]
     Dosage: 20 MG/DAY, PRN
     Route: 048
     Dates: start: 20120611
  10. ZYLORIC [Concomitant]
     Dosage: 100 MG, QD
     Route: 048
     Dates: end: 20120806
  11. FEBURIC [Concomitant]
     Dosage: 20 MG, QD
     Route: 048
     Dates: start: 20120807

REACTIONS (2)
  - White blood cell count decreased [Recovered/Resolved]
  - Neutrophil count decreased [Recovered/Resolved]
